FAERS Safety Report 5013674-1 (Version None)
Quarter: 2006Q2

REPORT INFORMATION
  Report Type: 
  Country: None (occurrence: None)
  Receive Date: 20060530
  Receipt Date: 20060517
  Transmission Date: 20061013
  Serious: Yes (Other)
  Sender: FDA-Public Use
  Company Number: 2006008950

PATIENT
  Age: 29 Year
  Sex: Female
  Weight: 90 kg

DRUGS (3)
  1. QUILONUM RETARD [Suspect]
     Dosage: 15TAB SINGLE DOSE
     Route: 048
     Dates: start: 20060516, end: 20060516
  2. VENLAFAXINE HCL [Suspect]
     Dosage: 4TAB SINGLE DOSE
     Route: 048
     Dates: start: 20060516, end: 20060516
  3. ZYPREXA [Suspect]
     Dosage: 4TAB SINGLE DOSE
     Route: 048
     Dates: start: 20060516, end: 20060516

REACTIONS (3)
  - DIARRHOEA [None]
  - DRUG ABUSER [None]
  - FATIGUE [None]
